FAERS Safety Report 7305326-X (Version None)
Quarter: 2011Q1

REPORT INFORMATION
  Report Type: 
  Country: None (occurrence: None)
  Receive Date: 20110222
  Receipt Date: 20110208
  Transmission Date: 20110831
  Serious: Yes (Other)
  Sender: FDA-Public Use
  Company Number: PHHY2011US03313

PATIENT
  Sex: Male

DRUGS (3)
  1. GILENYA [Suspect]
     Indication: MULTIPLE SCLEROSIS
     Dosage: 0.5 MG, QD
     Route: 048
     Dates: start: 20110114
  2. LISINOPRIL [Suspect]
     Dosage: 10 MG, QD
     Dates: start: 20110208
  3. LISINOPRIL [Suspect]
     Dosage: 5 MG, QD

REACTIONS (2)
  - DIZZINESS [None]
  - BLOOD PRESSURE FLUCTUATION [None]
